FAERS Safety Report 15263112 (Version 1)
Quarter: 2018Q4

REPORT INFORMATION
  Report Type: Spontaneous
  Country: CN (occurrence: CN)
  Receive Date: 20180810
  Receipt Date: 20180810
  Transmission Date: 20190204
  Serious: Yes (Other)
  Sender: FDA-Public Use
  Company Number: CN-BAXTER-2018BAX020971

PATIENT
  Age: 60 Year
  Sex: Male
  Weight: 55 kg

DRUGS (29)
  1. 0.9% SODIUM CHLORIDE INJECTION [Suspect]
     Active Substance: SODIUM CHLORIDE
     Dosage: COMPOUNDED WITH AMBROXOL HYDROCHLORIDE INJECTION
     Route: 041
     Dates: start: 20180616, end: 20180620
  2. 0.9% SODIUM CHLORIDE INJECTION [Suspect]
     Active Substance: SODIUM CHLORIDE
     Dosage: DOSE REINTRODUCED (COMPOUNDED WITH AMBROXOL HYDROCHLORIDE INJECTION)
     Route: 041
  3. POTASSIUM CHLORIDE. [Suspect]
     Active Substance: POTASSIUM CHLORIDE
     Indication: ELECTROLYTE SUBSTITUTION THERAPY
     Route: 041
     Dates: start: 20180616, end: 20180617
  4. 0.9% SODIUM CHLORIDE INJECTION [Suspect]
     Active Substance: SODIUM CHLORIDE
     Indication: PROPHYLAXIS
     Dosage: COMPOUNDED WITH OMEPRAZOLE SODIUM FOR INJECTION 40MG
     Route: 041
     Dates: start: 20180616, end: 20180620
  5. NOVAMIN (AMINO ACIDS NOS) [Suspect]
     Active Substance: AMINO ACIDS
     Indication: VITAMIN SUPPLEMENTATION
     Dosage: ABOUT 100 ML WAS INFUSED, DOSE RE-INTRODUCED
     Route: 041
     Dates: start: 20180617, end: 20180617
  6. GLUCOSE [Suspect]
     Active Substance: DEXTROSE
     Indication: NUTRITIONAL SUPPLEMENTATION
     Route: 041
     Dates: start: 20180616, end: 20180616
  7. WEIRUITE (TROPISETRON HYDROCHLORIDE) [Suspect]
     Active Substance: TROPISETRON HYDROCHLORIDE
     Indication: PROPHYLAXIS OF NAUSEA AND VOMITING
     Route: 041
     Dates: start: 20180616, end: 20180618
  8. AMBROXOL HYDROCHLORIDE [Suspect]
     Active Substance: AMBROXOL HYDROCHLORIDE
     Dosage: DOSE REINTRODUCED
     Route: 041
  9. DEZOCINE [Suspect]
     Active Substance: DEZOCINE
     Dosage: DOSE REINTRODUCED
     Route: 030
  10. MEDIUM AND LONG CHAIN FAT EMULSION INJECTION (C8-24) [Suspect]
     Active Substance: GLYCERIN\MEDIUM-CHAIN TRIGLYCERIDES\PHOSPHOLIPID\SOYBEAN OIL
     Indication: NUTRITIONAL SUPPLEMENTATION
     Route: 041
     Dates: start: 20180616, end: 20180616
  11. CONCENTRATED SODIUM CHLORIDE [Suspect]
     Active Substance: SODIUM CHLORIDE
     Indication: ELECTROLYTE SUBSTITUTION THERAPY
     Route: 041
     Dates: start: 20180616, end: 20180616
  12. GLUCOSE [Suspect]
     Active Substance: DEXTROSE
     Indication: MEDICATION DILUTION
     Route: 041
     Dates: start: 20180616, end: 20180617
  13. GLUCOSE [Suspect]
     Active Substance: DEXTROSE
     Dosage: ABOUT 100 ML WAS INFUSED, DOSE RE-INTRODUCED
     Route: 041
     Dates: start: 20180617, end: 20180617
  14. 0.9% SODIUM CHLORIDE INJECTION [Suspect]
     Active Substance: SODIUM CHLORIDE
     Indication: PROPHYLAXIS OF NAUSEA AND VOMITING
     Dosage: DOSE REINTRODUCED (COMPOUNDED WITH TROPISETRON HYDROCHLORIDE INJECTION 5MG)
     Route: 041
  15. NOVAMIN (AMINO ACIDS NOS) [Suspect]
     Active Substance: AMINO ACIDS
     Indication: PARENTERAL NUTRITION
     Route: 041
     Dates: start: 20180616, end: 20180616
  16. DEZOCINE [Suspect]
     Active Substance: DEZOCINE
     Indication: PAIN MANAGEMENT
     Route: 030
     Dates: start: 20180616, end: 20180620
  17. 0.9% SODIUM CHLORIDE INJECTION [Suspect]
     Active Substance: SODIUM CHLORIDE
     Indication: SPUTUM ABNORMAL
     Dosage: DOSE REINTRODUCED, (COMPOUNDED WITH OMEPRAZOLE SODIUM FOR INJECTION 40MG)
     Route: 041
  18. POTASSIUM CHLORIDE. [Suspect]
     Active Substance: POTASSIUM CHLORIDE
     Dosage: ABOUT 100 ML WAS INFUSED, DOSE RE-INTRODUCED
     Route: 041
     Dates: start: 20180617, end: 20180617
  19. OMEPRAZOLE SODIUM [Suspect]
     Active Substance: OMEPRAZOLE SODIUM
     Indication: GASTRITIS PROPHYLAXIS
     Route: 041
     Dates: start: 20180616, end: 20180620
  20. NOVAMIN (AMINO ACIDS NOS) [Suspect]
     Active Substance: AMINO ACIDS
     Dosage: 2 BOTTLES
     Route: 041
     Dates: start: 20180617, end: 20180617
  21. WEIRUITE (TROPISETRON HYDROCHLORIDE) [Suspect]
     Active Substance: TROPISETRON HYDROCHLORIDE
     Dosage: DOSE REINTRODUCED
     Route: 041
  22. AMBROXOL HYDROCHLORIDE [Suspect]
     Active Substance: AMBROXOL HYDROCHLORIDE
     Indication: SPUTUM ABNORMAL
     Route: 041
     Dates: start: 20180616, end: 20180620
  23. 0.9% SODIUM CHLORIDE INJECTION [Suspect]
     Active Substance: SODIUM CHLORIDE
     Indication: PROPHYLAXIS OF NAUSEA AND VOMITING
     Dosage: COMPOUNDED WITH TROPISETRON HYDROCHLORIDE INJECTION 5MG
     Route: 041
     Dates: start: 20180616, end: 20180618
  24. CONCENTRATED SODIUM CHLORIDE [Suspect]
     Active Substance: SODIUM CHLORIDE
     Dosage: ABOUT 100 ML WAS INFUSED, DOSE RE-INTRODUCED
     Route: 041
     Dates: start: 20180617, end: 20180617
  25. MEDIUM AND LONG CHAIN FAT EMULSION INJECTION (C8-24) [Suspect]
     Active Substance: GLYCERIN\MEDIUM-CHAIN TRIGLYCERIDES\PHOSPHOLIPID\SOYBEAN OIL
     Dosage: 100 ML HAD BEEN INFUSED, DOSE RE-INTRODUCED
     Route: 041
     Dates: start: 20180617, end: 20180617
  26. GLUCOSE [Suspect]
     Active Substance: DEXTROSE
     Dosage: ABOUT 100 ML WAS INFUSED, DOSE RE-INTRODUCED
     Route: 041
     Dates: start: 20180617, end: 20180617
  27. INSULIN [Suspect]
     Active Substance: INSULIN NOS
     Indication: BLOOD GLUCOSE ABNORMAL
     Dosage: 32 U
     Route: 041
     Dates: start: 20180616, end: 20180616
  28. INSULIN [Suspect]
     Active Substance: INSULIN NOS
     Dosage: ABOUT 100 ML WAS INFUSED, DOSE RE-INTRODUCED
     Route: 041
     Dates: start: 20180617, end: 20180617
  29. OMEPRAZOLE SODIUM [Suspect]
     Active Substance: OMEPRAZOLE SODIUM
     Dosage: DOSE REINTRODUCED
     Route: 041

REACTIONS (5)
  - Pyrexia [Recovered/Resolved]
  - Flushing [Recovered/Resolved]
  - Chills [Recovered/Resolved]
  - Erythema [Recovered/Resolved]
  - Temperature intolerance [Recovered/Resolved]

NARRATIVE: CASE EVENT DATE: 20180616
